FAERS Safety Report 6892669-7 (Version None)
Quarter: 2010Q3

REPORT INFORMATION
  Report Type: 
  Country: None (occurrence: None)
  Receive Date: 20100731
  Receipt Date: 20080813
  Transmission Date: 20110219
  Serious: Yes (Other)
  Sender: FDA-Public Use
  Company Number: US-PFIZER INC-2008060977

PATIENT
  Sex: Female
  Weight: 72.6 kg

DRUGS (6)
  1. NEURONTIN [Suspect]
     Indication: CONVULSION
     Dates: start: 20080626
  2. ACIPHEX [Concomitant]
  3. VICODIN [Concomitant]
  4. SOMA [Concomitant]
  5. REGLAN [Concomitant]
  6. VALIUM [Concomitant]

REACTIONS (5)
  - DIZZINESS [None]
  - DRUG INEFFECTIVE [None]
  - FALL [None]
  - FEELING ABNORMAL [None]
  - SOMNOLENCE [None]
